FAERS Safety Report 8543134-2 (Version None)
Quarter: 2012Q3

REPORT INFORMATION
  Report Type: 
  Country: None (occurrence: None)
  Receive Date: 20120727
  Receipt Date: 20120227
  Transmission Date: 20120928
  Serious: No
  Sender: FDA-Public Use
  Company Number: US-MYLANLABS-2012S1004542

PATIENT
  Age: 36 Year
  Sex: Female
  Weight: 52.16 kg

DRUGS (1)
  1. LEVOTHYROXINE SODIUM [Suspect]
     Indication: HYPERTHYROIDISM

REACTIONS (7)
  - SWOLLEN TONGUE [None]
  - CONSTIPATION [None]
  - PSORIASIS [None]
  - TEMPERATURE INTOLERANCE [None]
  - HYPERTHYROIDISM [None]
  - WEIGHT INCREASED [None]
  - ADVERSE EVENT [None]
